FAERS Safety Report 5509044-X (Version None)
Quarter: 2007Q4

REPORT INFORMATION
  Report Type: 
  Country: None (occurrence: None)
  Receive Date: 20071107
  Receipt Date: 20071031
  Transmission Date: 20080405
  Serious: Yes (Other)
  Sender: FDA-Public Use
  Company Number: GB-ASTRAZENECA-2007GB02222

PATIENT
  Sex: Male

DRUGS (1)
  1. GOSERELIN [Suspect]
     Indication: PROSTATE CANCER
     Route: 058
     Dates: start: 20060101

REACTIONS (4)
  - BACTERIAL INFECTION [None]
  - DIABETES MELLITUS [None]
  - IMMUNOSUPPRESSION [None]
  - RETROPHARYNGEAL ABSCESS [None]
